FAERS Safety Report 24860369 (Version 2)
Quarter: 2025Q1

REPORT INFORMATION
  Report Type: Spontaneous
  Country: US (occurrence: US)
  Receive Date: 20250120
  Receipt Date: 20250131
  Transmission Date: 20250409
  Serious: No
  Sender: ROCHE
  Company Number: US-ROCHE-10000183068

PATIENT
  Sex: Female

DRUGS (19)
  1. ACTEMRA ACTPEN [Suspect]
     Active Substance: TOCILIZUMAB
     Indication: Giant cell arteritis
     Dosage: ONGOING
     Route: 003
  2. ENTRESTO [Concomitant]
     Active Substance: SACUBITRIL\VALSARTAN
  3. CARVEDILOL [Concomitant]
     Active Substance: CARVEDILOL
  4. JANUVIA [Concomitant]
     Active Substance: SITAGLIPTIN PHOSPHATE
  5. GABAPENTIN [Concomitant]
     Active Substance: GABAPENTIN
  6. NITROGLYCERIN [Concomitant]
     Active Substance: NITROGLYCERIN
  7. POTASSIUM CHLORIDE [Concomitant]
     Active Substance: POTASSIUM CHLORIDE
  8. CYCLOBENZAPRINE [Concomitant]
     Active Substance: CYCLOBENZAPRINE
  9. ROSUVASTATIN [Concomitant]
     Active Substance: ROSUVASTATIN
  10. GLIPIZIDE [Concomitant]
     Active Substance: GLIPIZIDE
  11. OTEZLA [Concomitant]
     Active Substance: APREMILAST
  12. PLAVIX [Concomitant]
     Active Substance: CLOPIDOGREL BISULFATE
  13. ESCITALOPRAM [Concomitant]
     Active Substance: ESCITALOPRAM OXALATE
  14. CLONAZEPAM [Concomitant]
     Active Substance: CLONAZEPAM
  15. VERAPAMIL [Concomitant]
     Active Substance: VERAPAMIL HYDROCHLORIDE
  16. FUROSEMIDE [Concomitant]
     Active Substance: FUROSEMIDE
  17. RANOLAZINE [Concomitant]
     Active Substance: RANOLAZINE
  18. TRAMADOL [Concomitant]
     Active Substance: TRAMADOL
  19. NITROGLYCERIN PATCHES (II) [Concomitant]

REACTIONS (2)
  - Dyspnoea [Unknown]
  - Alopecia [Unknown]
